FAERS Safety Report 7769040-9 (Version None)
Quarter: 2011Q3

REPORT INFORMATION
  Report Type: 
  Country: None (occurrence: None)
  Receive Date: 20110922
  Receipt Date: 20110105
  Transmission Date: 20111222
  Serious: No
  Sender: FDA-Public Use
  Company Number: US-ASTRAZENECA-2011SE00738

PATIENT
  Age: 773 Month
  Sex: Female
  Weight: 74.8 kg

DRUGS (3)
  1. PREMPRO [Concomitant]
  2. SEROQUEL [Suspect]
     Route: 048
     Dates: start: 20101217, end: 20101201
  3. SEROQUEL [Suspect]
     Indication: BIPOLAR DISORDER
     Route: 048
     Dates: start: 20100401, end: 20101217

REACTIONS (8)
  - LETHARGY [None]
  - DIARRHOEA [None]
  - DRUG DOSE OMISSION [None]
  - MOOD SWINGS [None]
  - INCORRECT DOSE ADMINISTERED [None]
  - ANXIETY [None]
  - DECREASED APPETITE [None]
  - THIRST [None]
